FAERS Safety Report 8304440-X (Version None)
Quarter: 2012Q2

REPORT INFORMATION
  Report Type: 
  Country: None (occurrence: None)
  Receive Date: 20120423
  Receipt Date: 20111010
  Transmission Date: 20120825
  Serious: No
  Sender: FDA-Public Use
  Company Number: US-COVIDIEN/TYCO HEALTHCARE/MALLINCKRODT-T201101916

PATIENT
  Sex: Male

DRUGS (2)
  1. METHYLIN [Suspect]
     Dosage: 20 MG, BID
     Dates: start: 20110921
  2. REMERON [Concomitant]
     Dosage: 30 MG, 1/2 TAB QD

REACTIONS (3)
  - SOMNOLENCE [None]
  - BACK PAIN [None]
  - DRUG INEFFECTIVE [None]
